FAERS Safety Report 8715126 (Version 2)
Quarter: 2012Q4

REPORT INFORMATION
  Report Type: Spontaneous
  Country: US (occurrence: None)
  Receive Date: 20120725
  Receipt Date: 20120925
  Transmission Date: 20130627
  Serious: Yes (Other)
  Sender: FDA-Public Use
  Company Number: 1207-372

PATIENT
  Age: 72 Year
  Sex: Male

DRUGS (1)
  1. EYLEA [Suspect]
     Indication: EXUDATIVE SENILE MACULAR DEGENERATION OF RETINA
     Dosage: 1 in 1 M, intravitreal
     Dates: start: 20120209, end: 20120621

REACTIONS (2)
  - Visual acuity reduced [None]
  - Vitritis [None]
